FAERS Safety Report 17797810 (Version 2)
Quarter: 2020Q2

REPORT INFORMATION
  Report Type: Spontaneous
  Country: DE (occurrence: DE)
  Receive Date: 20200518
  Receipt Date: 20200520
  Transmission Date: 20200714
  Serious: Yes (Hospitalization, Other)
  Sender: FDA-Public Use
  Company Number: DE-TORRENT-00017560

PATIENT
  Age: 5 Year
  Sex: Male

DRUGS (1)
  1. LEVETIRACETAM. [Suspect]
     Active Substance: LEVETIRACETAM
     Indication: SEIZURE
     Dosage: DAILY DOSE: 8 ML MILLILITRE(S) EVERY DAYS 2 SEPARATED DOSES
     Route: 048
     Dates: start: 20180710

REACTIONS (3)
  - Seizure [Recovered/Resolved]
  - Muscle spasms [Unknown]
  - Nystagmus [Unknown]

NARRATIVE: CASE EVENT DATE: 20180729
